FAERS Safety Report 9643737 (Version 2)
Quarter: 2013Q4

REPORT INFORMATION
  Report Type: Report from Study
  Country: FR (occurrence: FR)
  Receive Date: 20131024
  Receipt Date: 20131024
  Transmission Date: 20140711
  Serious: Yes (Hospitalization)
  Sender: FDA-Public Use
  Company Number: FR-TEVA-400551USA

PATIENT
  Age: 65 Year
  Sex: Female
  Weight: 152 kg

DRUGS (16)
  1. BENDAMUSTINE [Suspect]
     Indication: B-CELL SMALL LYMPHOCYTIC LYMPHOMA
     Route: 042
     Dates: start: 20121206
  2. BENDAMUSTINE [Suspect]
     Route: 042
     Dates: start: 20130101
  3. BENDAMUSTINE [Suspect]
     Route: 042
     Dates: start: 20130131
  4. ARZERRA [Suspect]
     Indication: B-CELL SMALL LYMPHOCYTIC LYMPHOMA
     Dosage: UNKNOWN/D
     Route: 042
     Dates: start: 20121127
  5. ARZERRA [Suspect]
     Route: 042
     Dates: start: 20121205
  6. ARZERRA [Suspect]
     Route: 042
     Dates: start: 20130101
  7. ARZERRA [Suspect]
     Route: 042
     Dates: start: 20130131
  8. SOLU MEDROL [Concomitant]
     Indication: PROPHYLAXIS
     Dates: start: 20121127
  9. SOLU MEDROL [Concomitant]
     Dates: start: 20130101
  10. SOLU MEDROL [Concomitant]
     Dates: start: 20130131
  11. DETENSIEL [Concomitant]
     Indication: HYPERTENSION
     Dosage: 5 MILLIGRAM DAILY;
     Route: 048
     Dates: start: 1998
  12. STAGID [Concomitant]
     Indication: DIABETES MELLITUS
     Dosage: 2100 MILLIGRAM DAILY;
     Route: 048
     Dates: start: 2002
  13. DIFFU K [Concomitant]
     Indication: HYPOKALAEMIA
     Dosage: 3.6 GRAM DAILY;
     Route: 048
     Dates: start: 20130115
  14. IXPRIM [Concomitant]
     Indication: PRODUCT USED FOR UNKNOWN INDICATION
     Dates: start: 20130214
  15. ALDACTAZINE [Concomitant]
     Indication: PRODUCT USED FOR UNKNOWN INDICATION
     Dates: start: 1998
  16. DIAMICRON [Concomitant]
     Indication: DIABETES MELLITUS
     Dosage: 240 MILLIGRAM DAILY;
     Route: 048
     Dates: start: 2002

REACTIONS (3)
  - Metabolic disorder [Recovered/Resolved]
  - Vomiting [Recovered/Resolved]
  - Diarrhoea [Recovered/Resolved]
